FAERS Safety Report 6249214-9 (Version None)
Quarter: 2009Q2

REPORT INFORMATION
  Report Type: 
  Country: None (occurrence: None)
  Receive Date: 20090624
  Receipt Date: 20090624
  Transmission Date: 20091009
  Serious: Yes (Other)
  Sender: FDA-Public Use
  Company Number: None

PATIENT
  Age: 75 Year
  Sex: Female
  Weight: 72.1219 kg

DRUGS (2)
  1. RESTORIL [Suspect]
     Indication: RESTLESS LEGS SYNDROME
  2. MIRAPEX [Suspect]
     Indication: INSOMNIA

REACTIONS (2)
  - DRUG INEFFECTIVE [None]
  - PATHOLOGICAL GAMBLING [None]
